FAERS Safety Report 4778643-5 (Version None)
Quarter: 2005Q3

REPORT INFORMATION
  Report Type: 
  Country: None (occurrence: None)
  Receive Date: 20050926
  Receipt Date: 20050622
  Transmission Date: 20060218
  Serious: Yes (Other)
  Sender: FDA-Public Use
  Company Number: 2005JP001249

PATIENT
  Age: 55 Year
  Sex: Male
  Weight: 55.5 kg

DRUGS (5)
  1. CEFAZOLIN [Suspect]
     Indication: PERINEPHRIC ABSCESS
     Dosage: 1G FOUR TIMES PER DAY
     Route: 042
     Dates: start: 20050502, end: 20050517
  2. AMPICILLIN SODIUM/SULBACTAM SODIUM [Suspect]
     Indication: PERINEPHRIC ABSCESS
     Dosage: 1.5G PER DAY
     Route: 042
     Dates: start: 20050425, end: 20050501
  3. SULTAMICILLIN TOSILATE [Concomitant]
     Dates: start: 20050425, end: 20050502
  4. NOVORAPID [Concomitant]
     Dates: start: 20050425
  5. LANTUS [Concomitant]
     Dates: start: 20050425

REACTIONS (3)
  - APLASTIC ANAEMIA [None]
  - ILL-DEFINED DISORDER [None]
  - PANCYTOPENIA [None]
